FAERS Safety Report 7041541-0 (Version None)
Quarter: 2010Q4

REPORT INFORMATION
  Report Type: 
  Country: None (occurrence: None)
  Receive Date: 20101013
  Receipt Date: 20100701
  Transmission Date: 20110411
  Serious: No
  Sender: FDA-Public Use
  Company Number: US-ASTRAZENECA-2010SE29863

PATIENT
  Age: 76 Year
  Sex: Female
  Weight: 115.2 kg

DRUGS (10)
  1. SYMBICORT [Suspect]
     Indication: EMPHYSEMA
     Dosage: 160 MG, TWO PUFFS
     Route: 055
     Dates: start: 20100615
  2. SYMBICORT [Suspect]
     Indication: CHRONIC OBSTRUCTIVE PULMONARY DISEASE
     Dosage: 160 MG, TWO PUFFS
     Route: 055
     Dates: start: 20100615
  3. LISINOPRIL [Concomitant]
     Indication: HYPERTENSION
     Route: 048
  4. LEVOTHYROXINE [Concomitant]
     Route: 048
  5. LANITS INSULIN [Concomitant]
  6. REGULAR INSULIN [Concomitant]
     Indication: DIABETES MELLITUS
     Dosage: SLIDING SCALE
     Route: 058
  7. ALENDRONATE SODIUM [Concomitant]
     Indication: OSTEOPOROSIS
     Route: 048
  8. RIBOFLAVONOID [Concomitant]
     Indication: TINNITUS
     Route: 048
  9. SYNTHROID [Concomitant]
  10. ALEVE (CAPLET) [Concomitant]

REACTIONS (3)
  - BLOOD GLUCOSE INCREASED [None]
  - DRUG INEFFECTIVE [None]
  - DYSPNOEA [None]
